FAERS Safety Report 5277990-0 (Version None)
Quarter: 2007Q1

REPORT INFORMATION
  Report Type: 
  Country: None (occurrence: None)
  Receive Date: 20070321
  Receipt Date: 20070313
  Transmission Date: 20070707
  Serious: Yes (Death)
  Sender: FDA-Public Use
  Company Number: B0461962A

PATIENT
  Sex: 0

DRUGS (5)
  1. ALKERAN [Suspect]
     Indication: HODGKIN'S DISEASE
     Dosage: UNK / SEE DOSAGE TEXT / UNKNOWN
  2. CARMUSTINE [Suspect]
     Indication: HODGKIN'S DISEASE
     Dosage: 300 MG/M2 / SEE DOSAGE TEXT / UNKNOWN
  3. ETOPOSIDE [Suspect]
     Dosage: 800 MG/M2 / SEE DOSAGE TEXT / UNKNOWN
  4. CYTARABINE [Suspect]
     Dosage: 1600 MG/M2 / SEE DOSAGE TEXT / UNKNOWN
  5. AUTO STEM CELL INFUSION (FORMULATION UNKNOWN) (AUTO STEM CELL INFUSION [Suspect]

REACTIONS (1)
  - SEPTIC SHOCK [None]
